FAERS Safety Report 7251085-9 (Version None)
Quarter: 2011Q1

REPORT INFORMATION
  Report Type: 
  Country: None (occurrence: None)
  Receive Date: 20110128
  Receipt Date: 20110124
  Transmission Date: 20110831
  Serious: Yes (Hospitalization)
  Sender: FDA-Public Use
  Company Number: FR-MERCK-1101FRA00137

PATIENT
  Age: 80 Year
  Sex: Female

DRUGS (11)
  1. CLOPIDOGREL BISULFATE [Concomitant]
     Route: 048
  2. ESOMEPRAZOLE MAGNESIUM [Concomitant]
     Route: 048
  3. POTASSIUM CHLORIDE [Concomitant]
     Route: 048
  4. JANUVIA [Suspect]
     Indication: TYPE 2 DIABETES MELLITUS
     Route: 048
  5. OXYBUTYNIN CHLORIDE [Concomitant]
     Indication: HYPERTONIC BLADDER
     Route: 048
  6. MOLSIDOMINE [Concomitant]
     Route: 048
  7. GLICLAZIDE [Concomitant]
     Indication: TYPE 2 DIABETES MELLITUS
     Route: 065
  8. NITROGLYCERIN [Concomitant]
     Route: 061
  9. ASPIRIN LYSINE [Concomitant]
     Route: 048
  10. RAMIPRIL [Concomitant]
     Route: 048
  11. BISOPROLOL FUMARATE [Concomitant]
     Route: 048

REACTIONS (3)
  - OVERDOSE [None]
  - FALL [None]
  - UPPER LIMB FRACTURE [None]
